FAERS Safety Report 8791285 (Version 1)
Quarter: 2012Q4

REPORT INFORMATION
  Report Type: Spontaneous
  Country: DE (occurrence: None)
  Receive Date: 20120911
  Receipt Date: 20120911
  Transmission Date: 20130627
  Serious: Yes (Other)
  Sender: FDA-Public Use
  Company Number: GER/GER/12/0025729

PATIENT
  Age: 20 Day
  Sex: Female

DRUGS (2)
  1. RAMIPRIL (RAMIPRIL) [Suspect]
     Indication: DRUG USE FOR UNKNOWN INDICATION
     Dosage: 5 mg, 2 in 1 d, transmammary
     Route: 063
     Dates: start: 20120407, end: 20120428
  2. METOPROLOL (METOPROLOL) [Concomitant]

REACTIONS (4)
  - Maternal drugs affecting foetus [None]
  - Aphthous stomatitis [None]
  - Poor weight gain neonatal [None]
  - Exposure during breast feeding [None]
